FAERS Safety Report 6644735-9 (Version None)
Quarter: 2010Q1

REPORT INFORMATION
  Report Type: 
  Country: None (occurrence: None)
  Receive Date: 20100322
  Receipt Date: 20100312
  Transmission Date: 20100710
  Serious: Yes (Hospitalization, Other)
  Sender: FDA-Public Use
  Company Number: DE-PFIZER INC-2010031955

PATIENT
  Age: 70 Year
  Sex: Female

DRUGS (97)
  1. NORVASC [Suspect]
     Indication: HYPERTENSION
     Dosage: 10 MG, 1X/DAY
     Route: 048
     Dates: start: 20070901
  2. HYDROCORTISONE SODIUM SUCCINATE [Suspect]
     Indication: SEPSIS
     Dosage: 140 MG, UNK
     Route: 042
     Dates: start: 20070829, end: 20070901
  3. HYDROCORTISONE SODIUM SUCCINATE [Suspect]
     Indication: STRIDOR
     Dosage: 200 MG, UNK
     Route: 042
     Dates: start: 20070907, end: 20070914
  4. ACETYLCYSTEINE [Suspect]
     Indication: SECRETION DISCHARGE
     Dosage: 300 MG, 3X/DAY
     Route: 048
     Dates: start: 20070827, end: 20070828
  5. ACETYLCYSTEINE [Suspect]
     Dosage: 300 MG, DAILY
     Route: 048
     Dates: start: 20070905, end: 20070918
  6. TAVOR [Suspect]
     Indication: RESTLESSNESS
     Dosage: 1 MG/ 1 X DAILY
     Route: 048
     Dates: start: 20070827
  7. TAVOR [Suspect]
     Dosage: 1 MG, 1X/DAY
     Route: 048
     Dates: start: 20070907, end: 20070915
  8. TAVOR [Suspect]
     Dosage: 1 MG, 1X/DAY
     Route: 048
     Dates: start: 20070918, end: 20070918
  9. TAVOR [Suspect]
     Dosage: 1 MG, 1X/DAY
     Route: 048
     Dates: start: 20070920, end: 20070920
  10. TAVOR [Suspect]
     Dosage: 1 MG, 1X/DAY
     Route: 048
     Dates: start: 20070922, end: 20070922
  11. STAPHYLEX [Suspect]
     Indication: PSOAS ABSCESS
     Dosage: 2 G, 3X/DAY
     Route: 042
     Dates: start: 20070831, end: 20070916
  12. RIFAMPICIN [Suspect]
     Indication: PSOAS ABSCESS
     Dosage: 600 MG, 1X/DAY
     Route: 042
     Dates: start: 20070831, end: 20070916
  13. POTASSIUM CHLORIDE [Suspect]
     Indication: SUPPLEMENTATION THERAPY
     Dosage: UNK
     Route: 042
     Dates: start: 20070827, end: 20070913
  14. EMBOLEX [Suspect]
     Indication: THROMBOSIS PROPHYLAXIS
     Dosage: 3000 IU, UNK
     Route: 058
     Dates: start: 20070830, end: 20070907
  15. BELOC ZOK [Suspect]
     Indication: HYPERTENSION
     Dosage: TWICE DAILY
     Route: 048
     Dates: start: 20070901
  16. ALDACTONE [Suspect]
     Indication: HYPERTENSION
     Dosage: 100 MG, 1X/DAY
     Route: 048
     Dates: start: 20070901
  17. SOLU-DECORTIN-H [Suspect]
     Indication: STRIDOR
     Dosage: 250 MG, DAILY
     Route: 042
     Dates: start: 20070906, end: 20070906
  18. SOLU-DECORTIN-H [Suspect]
     Indication: RASH
     Dosage: 250 MG, UNK
     Route: 042
     Dates: start: 20070920, end: 20070920
  19. INSULIN [Suspect]
     Indication: HYPERGLYCAEMIA
     Dosage: UNK
     Route: 058
     Dates: start: 20070905, end: 20070914
  20. LASIX [Suspect]
     Indication: POLYURIA
     Dosage: 40 MG, 4X/DAY
     Route: 048
     Dates: start: 20070902
  21. LASIX [Suspect]
     Dosage: 40 MG, 1X/DAY
     Route: 048
  22. BERODUAL [Suspect]
     Indication: LUNG DISORDER
     Dosage: 2 PUFFS IN THE MORNING, 2 PUFFS IN THE EVENING
     Route: 055
     Dates: start: 20070906
  23. HYDROCHLOROTHIAZIDE [Suspect]
     Indication: POLYURIA
     Dosage: 25 MG, 1X/DAY
     Route: 048
     Dates: start: 20070907, end: 20070911
  24. MUCOSOLVAN [Suspect]
     Indication: SECRETION DISCHARGE
     Dosage: UNK
     Route: 042
     Dates: start: 20070907, end: 20070912
  25. DICLAC [Suspect]
     Indication: PAIN
     Dosage: 75 MG, 2X/DAY
     Route: 048
     Dates: start: 20070908, end: 20070912
  26. DIPIDOLOR [Suspect]
     Indication: PAIN
     Dosage: 2 MG, 3X/DAY
     Route: 042
     Dates: start: 20070827, end: 20070828
  27. DIPIDOLOR [Suspect]
     Dosage: 3 MG, 3X/DAY
     Route: 042
     Dates: start: 20070830, end: 20070905
  28. DIPIDOLOR [Suspect]
     Dosage: 2 MG, 4X/DAY
     Route: 042
     Dates: start: 20070908, end: 20070909
  29. VOLUVEN [Suspect]
     Indication: SUPPLEMENTATION THERAPY
     Dosage: 500 ML, UNK
     Route: 042
     Dates: start: 20070827, end: 20070829
  30. VOLUVEN [Suspect]
     Dosage: 500 ML, UNK
     Route: 042
     Dates: start: 20070907, end: 20070914
  31. LEVOTHYROXINE SODIUM [Suspect]
     Indication: HYPOTHYROIDISM
     Dosage: 75 MG, 1X/DAY
     Route: 048
     Dates: start: 20070910
  32. MAGNETRANS FORTE [Suspect]
     Indication: SUPPLEMENTATION THERAPY
     Dosage: 300 MG IN THE MORNING, 300 MG IN THE EVENING
     Route: 048
     Dates: start: 20070911, end: 20070911
  33. ADALAT [Suspect]
     Indication: HYPERTENSION
     Dosage: 5 MG, 2X/DAY
     Route: 048
     Dates: start: 20070911
  34. ADALAT [Suspect]
     Dosage: 5 MG, 1X/DAY
     Route: 048
     Dates: end: 20070914
  35. SODIUM CHLORIDE [Suspect]
     Indication: PROPHYLAXIS
     Dosage: UNK
     Route: 042
     Dates: start: 20070911
  36. PARACETAMOL [Suspect]
     Indication: PYREXIA
     Dosage: 1 G, 2X/DAY
     Route: 048
     Dates: start: 20070912
  37. PARACETAMOL [Suspect]
     Dosage: 1 G, 3X/DAY
     Route: 048
     Dates: end: 20070916
  38. AMBROXOL [Suspect]
     Indication: SECRETION DISCHARGE
     Dosage: 15 MG, 3X/DAY
     Route: 048
     Dates: start: 20070913, end: 20070918
  39. PANTOPRAZOLE [Suspect]
     Indication: PROPHYLAXIS AGAINST GASTROINTESTINAL ULCER
     Dosage: 2X20 MG IN THE MORNING
     Route: 048
     Dates: start: 20070905
  40. TRAMAL [Suspect]
     Indication: PAIN
     Dosage: 20 GTT, 2X/DAY
     Route: 048
     Dates: start: 20070908, end: 20070909
  41. TRAMAL [Suspect]
     Dosage: 20 GTT, 3X/DAY
     Route: 048
     Dates: start: 20070912, end: 20070913
  42. JONOSTERIL [Suspect]
     Indication: SUPPLEMENTATION THERAPY
     Dosage: UNK
     Route: 042
     Dates: start: 20070824, end: 20070903
  43. JONOSTERIL [Suspect]
     Dosage: UNK
     Route: 042
     Dates: start: 20070905, end: 20070911
  44. JONOSTERIL [Suspect]
     Dosage: UNK
     Route: 042
     Dates: start: 20070914, end: 20070916
  45. JONOSTERIL [Suspect]
     Dosage: UNK
     Route: 042
     Dates: start: 20070920, end: 20070921
  46. JONOSTERIL [Suspect]
     Dosage: UNK
     Route: 042
     Dates: start: 20070923, end: 20070923
  47. CATAPRESAN [Suspect]
     Indication: HYPERTENSION
     Dosage: 150 MG, UNK
     Route: 042
     Dates: start: 20070830, end: 20070831
  48. CATAPRESAN [Suspect]
     Dosage: 150 MG, UNK
     Route: 042
     Dates: start: 20070907, end: 20070907
  49. DIPYRONE TAB [Suspect]
     Indication: PAIN
     Dosage: 40 GTT, 4X/DAY
     Route: 048
     Dates: start: 20070905, end: 20070914
  50. DIOVAN [Suspect]
     Indication: HYPERTENSION
     Dosage: 80 MG, 1X/DAY
     Route: 048
     Dates: start: 20070907, end: 20070912
  51. AMITRIPTYLINE HYDROCHLORIDE [Suspect]
     Indication: PAIN
     Dosage: 75 MG, 1X/DAY
     Route: 048
     Dates: start: 20070907, end: 20070914
  52. CLEXANE [Suspect]
     Indication: THROMBOSIS PROPHYLAXIS
     Dosage: UNK
     Route: 058
     Dates: start: 20070908
  53. VITAMIN B COMPLEX CAP [Suspect]
     Indication: SUPPLEMENTATION THERAPY
     Dosage: UNK
     Route: 042
     Dates: start: 20070911, end: 20070911
  54. TPN [Suspect]
     Indication: SUPPLEMENTATION THERAPY
     Dosage: UNK
     Route: 042
     Dates: start: 20070912, end: 20070914
  55. KALINOR [Suspect]
     Indication: SUPPLEMENTATION THERAPY
     Dosage: 2 X DAILY
     Route: 048
     Dates: start: 20070912, end: 20070920
  56. CLONIDINE HCL [Suspect]
     Indication: HYPERTENSION
     Dosage: 150 MG, 3X/DAY
     Route: 048
     Dates: start: 20070912
  57. MORONAL [Suspect]
     Indication: PROPHYLAXIS
     Dosage: UNK
     Route: 061
     Dates: start: 20070914, end: 20070918
  58. PERENTEROL [Suspect]
     Indication: DIARRHOEA
     Dosage: 2 IN THE MORNING, 2 AT NOON, 2 IN THE EVENING
     Route: 048
     Dates: start: 20070915, end: 20070919
  59. AVELOX [Suspect]
     Indication: PSOAS ABSCESS
     Dosage: 400 MG, 1X/DAY
     Route: 048
     Dates: start: 20070916, end: 20070919
  60. NITROGLYCERIN [Suspect]
     Indication: HYPERTENSION
     Dosage: 2 PUFFS
     Route: 060
     Dates: start: 20070917, end: 20070917
  61. PIPRIL [Concomitant]
     Indication: PSOAS ABSCESS
     Dosage: 4 G, 2X/DAY
     Route: 042
     Dates: start: 20070827, end: 20070828
  62. CLINDAMYCIN HCL [Concomitant]
     Indication: PSOAS ABSCESS
     Dosage: 600 MG, 3X/DAY
     Route: 042
     Dates: start: 20090828, end: 20090828
  63. COMBACTAM [Concomitant]
     Indication: PSOAS ABSCESS
     Dosage: 1 G, 2X/DAY
     Route: 042
     Dates: start: 20070827, end: 20070828
  64. INSUMAN RAPID [Concomitant]
     Indication: HYPERGLYCAEMIA
     Dosage: 8 IU, UNK
     Route: 042
     Dates: start: 20070827, end: 20070828
  65. HEPARIN [Concomitant]
     Indication: THROMBOSIS PROPHYLAXIS
     Dosage: 15000 IU, UNK
     Route: 042
     Dates: start: 20070828, end: 20070828
  66. HALDOL [Concomitant]
     Indication: RESTLESSNESS
     Dosage: 1 MG
     Route: 042
     Dates: start: 20070827, end: 20070827
  67. HALDOL [Concomitant]
     Dosage: 5 MG
     Route: 042
     Dates: start: 20070828, end: 20070828
  68. DIAZEPAM [Concomitant]
     Indication: RESTLESSNESS
     Dosage: 2.5 MG (2.5 MG IN THE MORNING, 5 MG AT NOON, 5 MG IN THE EVENING)
     Route: 042
     Dates: start: 20070827, end: 20070828
  69. HETASTARCH IN SODIUM CHLORIDE [Concomitant]
     Indication: SUPPLEMENTATION THERAPY
     Dosage: 6 %, UNK
     Route: 042
     Dates: start: 20070828, end: 20070828
  70. AMINOVEN [Concomitant]
     Indication: SUPPLEMENTATION THERAPY
     Dosage: UNK
     Route: 042
     Dates: start: 20070828, end: 20070828
  71. ROCEPHIN [Concomitant]
     Indication: PSOAS ABSCESS
     Dosage: 2 G, 2X/DAY
     Route: 042
     Dates: start: 20070828, end: 20070831
  72. CLINDAMYCIN [Concomitant]
     Indication: PSOAS ABSCESS
     Dosage: 600 MG, 3X/DAY
     Route: 042
     Dates: start: 20070828, end: 20070831
  73. ARTERENOL [Concomitant]
     Indication: CARDIOVASCULAR INSUFFICIENCY
     Dosage: UNK
     Route: 042
     Dates: start: 20070828, end: 20070831
  74. PROPOFOL [Concomitant]
     Indication: STUPOR
     Dosage: UNK
     Route: 042
     Dates: start: 20070828, end: 20070831
  75. BELOC [Concomitant]
     Indication: HYPERTENSION
     Dosage: 5 MG, 1X/DAY
     Route: 042
     Dates: start: 20070828, end: 20070828
  76. BELOC [Concomitant]
     Dosage: 5 MG (10 MG IN THE MORNING, 10 MG AT NOON, 5 MG IN THE EVENING)
     Route: 042
     Dates: start: 20070830, end: 20070901
  77. METOCLOPRAMIDE [Concomitant]
     Indication: NAUSEA
     Dosage: 10 MG, 3X/DAY
     Route: 042
     Dates: start: 20070824, end: 20070901
  78. PANTOPRAZOLE [Concomitant]
     Dosage: 40 MG, 1X/DAY
     Route: 042
     Dates: start: 20070827, end: 20070901
  79. LASIX [Concomitant]
     Dosage: 10 MG, 500 MG AND 50 MG
     Route: 042
     Dates: start: 20070828, end: 20070905
  80. ACETYLCYSTEINE [Concomitant]
     Indication: SECRETION DISCHARGE
     Dosage: 600 MG, 2X/DAY
     Route: 042
     Dates: start: 20070829, end: 20070829
  81. NEOSTIGMINE [Concomitant]
     Indication: GASTROINTESTINAL MOTILITY DISORDER
     Dosage: 1 MG, UNK
     Route: 042
     Dates: start: 20070829, end: 20070831
  82. SUFENTA [Concomitant]
     Indication: STUPOR
     Dosage: UNK
     Route: 042
     Dates: start: 20070829, end: 20070831
  83. MULTIBIONTA [Concomitant]
     Indication: PARENTERAL NUTRITION
     Dosage: 1 AMPULLA
     Route: 042
     Dates: start: 20070902, end: 20070902
  84. DIPYRONE TAB [Concomitant]
     Dosage: 1 G, 3X/DAY
     Route: 042
     Dates: start: 20070824
  85. DIPYRONE TAB [Concomitant]
     Dosage: 1 G, 3X/DAY
     Route: 042
     Dates: start: 20070829, end: 20070904
  86. ACTRAPID [Concomitant]
     Indication: HYPERGLYCAEMIA
     Dosage: UNK
     Route: 042
     Dates: start: 20070829, end: 20070905
  87. TPN [Concomitant]
     Indication: SUPPLEMENTATION THERAPY
     Dosage: UNK
     Route: 042
     Dates: start: 20070829, end: 20070831
  88. TPN [Concomitant]
     Dosage: UNK
     Route: 042
     Dates: start: 20070903, end: 20070905
  89. EBRANTIL FOR INJECTION [Concomitant]
     Indication: HYPERTENSION
     Dosage: 250 MG, UNK
     Route: 042
     Dates: start: 20070831, end: 20070901
  90. LANTUS [Concomitant]
     Indication: HYPERGLYCAEMIA
     Dosage: UNK
     Route: 058
     Dates: start: 20070901, end: 20070901
  91. MEPERIDINE HCL [Concomitant]
     Indication: PAIN
     Dosage: 25 MG UNK
     Route: 042
     Dates: start: 20070902, end: 20070902
  92. FOLIC ACID [Concomitant]
     Indication: SUPPLEMENTATION THERAPY
     Dosage: 1 AMPULLA
     Route: 042
     Dates: start: 20070902, end: 20070902
  93. VITAMIN B-12 [Concomitant]
     Indication: SUPPLEMENTATION THERAPY
     Dosage: 1 AMPULLA
     Route: 042
     Dates: start: 20070902, end: 20070902
  94. VITAMIN K TAB [Concomitant]
     Indication: SUPPLEMENTATION THERAPY
     Dosage: 1 AMPULLA
     Route: 042
     Dates: start: 20070902, end: 20070902
  95. KALIUM ^VERLA^ [Concomitant]
     Indication: SUPPLEMENTATION THERAPY
     Dosage: 2 IN THE MORNING
     Route: 048
     Dates: start: 20070902, end: 20070903
  96. DIPYRONE TAB [Concomitant]
     Dosage: 1 G, 3X/DAY
     Route: 048
     Dates: start: 20070904, end: 20070904
  97. EUGALAC [Concomitant]
     Indication: CONSTIPATION
     Dosage: 20 ML, 1X/DAY
     Route: 048
     Dates: start: 20070904, end: 20070905

REACTIONS (1)
  - STEVENS-JOHNSON SYNDROME [None]
